FAERS Safety Report 8171390-1 (Version None)
Quarter: 2012Q1

REPORT INFORMATION
  Report Type: 
  Country: None (occurrence: None)
  Receive Date: 20120104
  Receipt Date: 20111202
  Transmission Date: 20120608
  Serious: No
  Sender: FDA-Public Use
  Company Number: 2011HGS-002899

PATIENT
  Age: 44 Year
  Sex: Female
  Weight: 106.5953 kg

DRUGS (17)
  1. FOLIC ACID [Concomitant]
  2. LYRICA [Concomitant]
  3. PREDNISONE [Concomitant]
  4. PLAQUENIL(HYDROXYCHLOROQUINE SULFATE)(HYDROXYCHLOROQUINE SULFATE) [Concomitant]
  5. SYNTHROID(LEVOTHYROXINE SODIUM)(LEVOTHYROXINE SODIUM) [Concomitant]
  6. ALLEGRA(FEXOFENADINE HYDROCHLORIDE)(FEXOFENADINE HYDROCHLORIDE) [Concomitant]
  7. METHOTREXATE [Concomitant]
  8. FIORICET(AXOTAL /OLD FORM/)(CAFFEINE, BUTALBITAL, PARACETAMOL) [Concomitant]
  9. BENLYSTA [Suspect]
     Indication: SYSTEMIC LUPUS ERYTHEMATOSUS
     Dosage: , 1 IN 14 D, INTRAVENOUS DRIP,  1 IN 28 D, INTRAVENOUS DRIP
     Route: 041
     Dates: start: 20111103
  10. ASPIRIN [Concomitant]
  11. NEXIUM [Concomitant]
  12. SYMBICORT(BUDESONIDE W/FORMOTEROL FUMARATE) (FORMOTEROL FUMARATE, BUDE [Concomitant]
  13. SINGULAIR (MONTELUKAST) (MONTELUKAST) [Concomitant]
  14. RESTASIS(CICLOSPORIN)(CICLOSPORIN) [Concomitant]
  15. TOPOMAX(TOPIRAMATE) (TOPIRAMATE) [Concomitant]
  16. ALBUTEROL (SALBUTAMOL)(SALBUTAMOL) [Concomitant]
  17. FLONASE(FLUTICASONE PROPIONATE)(FLUTICASONE PROPIONATE) [Concomitant]

REACTIONS (8)
  - MIGRAINE [None]
  - PHOTOSENSITIVITY REACTION [None]
  - HEADACHE [None]
  - DYSGEUSIA [None]
  - SINUSITIS [None]
  - COUGH [None]
  - NAUSEA [None]
  - DIZZINESS [None]
